FAERS Safety Report 5493566-4 (Version None)
Quarter: 2007Q4

REPORT INFORMATION
  Report Type: 
  Country: None (occurrence: None)
  Receive Date: 20071019
  Receipt Date: 20070710
  Transmission Date: 20080405
  Serious: Yes (Other)
  Sender: FDA-Public Use
  Company Number: CHPA2007US07566

PATIENT
  Sex: Female

DRUGS (6)
  1. SODIUM FLUORIDE (NCH) (SODIUM FLUORIDE) [Suspect]
     Dosage: 25 MG, QD
     Dates: start: 19860101, end: 19880101
  2. CALCIUM (NCH) CALCIUM [Suspect]
  3. CHOLECALCIFEROL (NCH) (CHOLECALCIFEROL) [Suspect]
  4. TERIPARATIDE (TERIPARATIDE) [Suspect]
     Indication: OSTEOPOROSIS
  5. ALL OTHER THERAPEUTIC PRODUCTS (NO INGREDIENTS/SUBSTANCES) [Suspect]
  6. IBANDRONIC ACID (IBANDRONIC ACID) [Suspect]

REACTIONS (7)
  - BIOPSY BONE ABNORMAL [None]
  - BONE DENSITY DECREASED [None]
  - BONE GRAFT [None]
  - FLUORIDE INCREASED [None]
  - HIGH TURNOVER OSTEOPATHY [None]
  - MULTIPLE FRACTURES [None]
  - OSTEOPOROSIS [None]
